FAERS Safety Report 8223612-6 (Version None)
Quarter: 2012Q1

REPORT INFORMATION
  Report Type: 
  Country: None (occurrence: None)
  Receive Date: 20120321
  Receipt Date: 20120309
  Transmission Date: 20120608
  Serious: Yes (Life-Threatening)
  Sender: FDA-Public Use
  Company Number: US-BAYER-2012-025418

PATIENT
  Age: 18 Year
  Sex: Female

DRUGS (1)
  1. YAZ [Suspect]
     Dosage: UNK

REACTIONS (9)
  - ABDOMINAL DISTENSION [None]
  - NAUSEA [None]
  - ABDOMINAL PAIN UPPER [None]
  - DECREASED APPETITE [None]
  - FATIGUE [None]
  - DIARRHOEA [None]
  - CHOLELITHIASIS [None]
  - BRADYCARDIA [None]
  - DYSPEPSIA [None]
